FAERS Safety Report 8378479-2 (Version None)
Quarter: 2012Q2

REPORT INFORMATION
  Report Type: 
  Country: None (occurrence: None)
  Receive Date: 20120522
  Receipt Date: 20120404
  Transmission Date: 20120825
  Serious: No
  Sender: FDA-Public Use
  Company Number: US-ASTRAZENECA-2011SE78915

PATIENT
  Age: 73 Year
  Sex: Female
  Weight: 67.1 kg

DRUGS (5)
  1. PRILOSEC [Suspect]
     Route: 048
  2. PREVACID [Concomitant]
  3. CELEBREX [Concomitant]
  4. TAGAMET [Concomitant]
  5. NEXIUM [Suspect]
     Indication: GASTROOESOPHAGEAL REFLUX DISEASE
     Route: 048

REACTIONS (5)
  - ABDOMINAL PAIN UPPER [None]
  - DRUG INEFFECTIVE [None]
  - PAIN [None]
  - INTENTIONAL DRUG MISUSE [None]
  - GASTRIC DISORDER [None]
